FAERS Safety Report 24977130 (Version 3)
Quarter: 2025Q2

REPORT INFORMATION
  Report Type: Report from Study
  Country: US (occurrence: US)
  Receive Date: 20250217
  Receipt Date: 20250408
  Transmission Date: 20250716
  Serious: Yes (Hospitalization)
  Sender: ALNYLAM PHARMACEUTICALS
  Company Number: US-ALNYLAM PHARMACEUTICALS, INC.-ALN-2025-001004

PATIENT

DRUGS (12)
  1. OXLUMO [Suspect]
     Active Substance: LUMASIRAN
     Indication: Primary hyperoxaluria
     Route: 065
     Dates: start: 20201202, end: 20201202
  2. OXLUMO [Suspect]
     Active Substance: LUMASIRAN
     Indication: Liver transplant
  3. PYRIDOXINE [Concomitant]
     Active Substance: PYRIDOXINE
     Indication: Product used for unknown indication
     Route: 065
     Dates: start: 20220216
  4. CATAPRES [Concomitant]
     Active Substance: CLONIDINE HYDROCHLORIDE
     Indication: Hypertension
     Dosage: 0.1 MILLIGRAM, WEEKLY
     Route: 061
     Dates: start: 20220808, end: 20241230
  5. FAMOTIDINE [Concomitant]
     Active Substance: FAMOTIDINE
     Indication: Product used for unknown indication
     Dosage: 10 MILLIGRAM, BID
     Route: 048
     Dates: start: 20220707, end: 20240209
  6. PROZAC [Concomitant]
     Active Substance: FLUOXETINE HYDROCHLORIDE
     Indication: Anxiety
     Dosage: 30 MILLIGRAM, QD
     Route: 048
     Dates: start: 20220708, end: 20241230
  7. CELLCEPT [Concomitant]
     Active Substance: MYCOPHENOLATE MOFETIL
     Indication: Immunosuppression
     Dosage: 500 MILLIGRAM, BID
     Route: 048
     Dates: start: 20220604
  8. PROCARDIA [Concomitant]
     Active Substance: NIFEDIPINE
     Indication: Renovascular hypertension
     Dosage: 30 MILLIGRAM, BID
     Route: 048
     Dates: start: 20220705
  9. PROGRAF [Concomitant]
     Active Substance: TACROLIMUS
     Indication: Transplantation complication
     Dosage: 2 MILLIGRAM, BID
     Route: 048
     Dates: start: 20220606, end: 20240926
  10. Lutein Zeaxanthin [Concomitant]
     Indication: Vitamin supplementation
     Dosage: 1 DOSAGE FORM, QD
     Route: 048
     Dates: start: 20230206
  11. MIRALAX [Concomitant]
     Active Substance: POLYETHYLENE GLYCOL 3350
     Indication: Laxative supportive care
     Dosage: 8.5 GRAM, QD
     Route: 048
     Dates: start: 20230302
  12. EX-LAX REGULAR STRENGTH STIMULANT LAXATIVE [Concomitant]
     Active Substance: SENNOSIDES
     Indication: Laxative supportive care
     Route: 048
     Dates: start: 20221202

REACTIONS (1)
  - Otitis media bacterial [Recovered/Resolved]

NARRATIVE: CASE EVENT DATE: 20231011
